FAERS Safety Report 7205601-3 (Version None)
Quarter: 2010Q4

REPORT INFORMATION
  Report Type: 
  Country: None (occurrence: None)
  Receive Date: 20101231
  Receipt Date: 20091109
  Transmission Date: 20110411
  Serious: Yes (Other)
  Sender: FDA-Public Use
  Company Number: US-NOVOPROD-291801

PATIENT
  Age: 68 Year
  Sex: Female
  Weight: 67.574 kg

DRUGS (14)
  1. NOVOLOG [Suspect]
     Indication: DIABETES MELLITUS
     Dosage: 40 IU, TID
     Route: 058
  2. NOVOLOG [Suspect]
     Dosage: UNK
     Route: 058
  3. NOVOLOG [Suspect]
     Dosage: UNK
     Route: 058
  4. NOVOLOG [Suspect]
     Dosage: UNK
     Route: 058
  5. LANTUS [Concomitant]
     Indication: DIABETES MELLITUS
     Route: 058
  6. LOTREL [Concomitant]
     Indication: HYPERTENSION
  7. LENOXIN [Concomitant]
     Indication: ARRHYTHMIA
  8. PLAVIX [Concomitant]
     Indication: ANTICOAGULANT THERAPY
  9. LYRICA [Concomitant]
     Indication: NEUROPATHY PERIPHERAL
  10. CALTRATE                           /00108001/ [Concomitant]
     Indication: MINERAL SUPPLEMENTATION
  11. VITAMIN D3 [Concomitant]
     Indication: VITAMIN SUPPLEMENTATION
  12. COREG [Concomitant]
     Indication: CORONARY ARTERY DISEASE
  13. FISH OIL [Concomitant]
     Indication: PRODUCT USED FOR UNKNOWN INDICATION
  14. NITROGLYCERIN [Concomitant]
     Indication: CARDIAC DISORDER

REACTIONS (4)
  - CEREBROVASCULAR ACCIDENT [None]
  - DEVICE MALFUNCTION [None]
  - MYOCARDIAL INFARCTION [None]
  - TRANSIENT ISCHAEMIC ATTACK [None]
